FAERS Safety Report 7096843-9 (Version None)
Quarter: 2010Q4

REPORT INFORMATION
  Report Type: 
  Country: None (occurrence: None)
  Receive Date: 20101111
  Receipt Date: 20101101
  Transmission Date: 20110411
  Serious: Yes (Other)
  Sender: FDA-Public Use
  Company Number: US-ROCHE-718749

PATIENT
  Sex: Male
  Weight: 170 kg

DRUGS (2)
  1. ACCUTANE [Suspect]
     Indication: ACNE
     Route: 065
     Dates: start: 20000101
  2. ACETAMINOPHEN [Concomitant]
     Indication: HEADACHE
     Route: 065

REACTIONS (6)
  - CROHN'S DISEASE [None]
  - GASTROINTESTINAL INJURY [None]
  - HEPATIC ENZYME INCREASED [None]
  - INFLAMMATORY BOWEL DISEASE [None]
  - IRRITABLE BOWEL SYNDROME [None]
  - TENDONITIS [None]
